FAERS Safety Report 6906434-5 (Version None)
Quarter: 2010Q3

REPORT INFORMATION
  Report Type: 
  Country: None (occurrence: None)
  Receive Date: 20100804
  Receipt Date: 20100730
  Transmission Date: 20110219
  Serious: Yes (Other)
  Sender: FDA-Public Use
  Company Number: B0667602A

PATIENT
  Sex: Female

DRUGS (3)
  1. CEFUROXIME [Suspect]
     Dosage: 250MG TWICE PER DAY
     Route: 048
     Dates: start: 20100527, end: 20100603
  2. OXYTETRACYCLINE + POLYMIXIN B SULPHATE [Concomitant]
     Route: 065
  3. DEXAMETHASONE + NYSTATIN [Concomitant]
     Route: 065

REACTIONS (4)
  - CONDITION AGGRAVATED [None]
  - DIARRHOEA [None]
  - HAEMATOCHEZIA [None]
  - PSEUDOMEMBRANOUS COLITIS [None]
